FAERS Safety Report 12861375 (Version 1)
Quarter: 2016Q4

REPORT INFORMATION
  Report Type: Spontaneous
  Country: US (occurrence: US)
  Receive Date: 20161019
  Receipt Date: 20161019
  Transmission Date: 20170207
  Serious: No
  Sender: FDA-Public Use
  Company Number: US-ASTRAZENECA-2015SE76161

PATIENT
  Age: 76 Year
  Sex: Female
  Weight: 50.3 kg

DRUGS (18)
  1. FASLODEX [Suspect]
     Active Substance: FULVESTRANT
     Indication: OESTROGEN THERAPY
     Dosage: 500MG,TWO 5ML PREFILLED SYRINGE
     Route: 030
     Dates: start: 20150803
  2. CETIRIZINE HCL [Concomitant]
     Active Substance: CETIRIZINE HYDROCHLORIDE
  3. DILTIAZEM. [Concomitant]
     Active Substance: DILTIAZEM
  4. IPRATROPIUM-ALBUTEROL [Concomitant]
     Active Substance: ALBUTEROL\IPRATROPIUM
  5. RALOXIFENE. [Concomitant]
     Active Substance: RALOXIFENE
  6. OMEPRAZOLE. [Suspect]
     Active Substance: OMEPRAZOLE
     Route: 048
  7. TRIAMCINOLONE ACETONIDE. [Concomitant]
     Active Substance: TRIAMCINOLONE ACETONIDE
  8. MULTIPLE VITAMIN [Concomitant]
     Active Substance: VITAMINS
  9. FASLODEX [Suspect]
     Active Substance: FULVESTRANT
     Indication: OESTROGEN THERAPY
     Dosage: 250 MG/5 ML,10 MLS (500 MG TOTAL) EVERY THIRTY(30) DAYS
     Route: 030
  10. ALPRAZOLAM. [Concomitant]
     Active Substance: ALPRAZOLAM
  11. CALCITONIN SALMON. [Concomitant]
     Active Substance: CALCITONIN SALMON
  12. CHOLECALCIFEROL [Concomitant]
     Active Substance: CHOLECALCIFEROL
  13. DICLOFENAC SODIUM. [Concomitant]
     Active Substance: DICLOFENAC SODIUM
  14. MELATONIN [Concomitant]
     Active Substance: MELATONIN
  15. PROBIOTIC PRODUCT [Concomitant]
  16. CALCIUM GARB-CHOLECALCIFEROL [Concomitant]
  17. ACETAMINOPHEN. [Concomitant]
     Active Substance: ACETAMINOPHEN
  18. MAGNESIUM [Concomitant]
     Active Substance: MAGNESIUM

REACTIONS (6)
  - Injection site pain [Unknown]
  - Dyspnoea [Unknown]
  - Cough [Unknown]
  - Fatigue [Unknown]
  - Eczema [Unknown]
  - Rash [Unknown]
